FAERS Safety Report 24177322 (Version 1)
Quarter: 2024Q3

REPORT INFORMATION
  Report Type: Spontaneous
  Country: GB (occurrence: GB)
  Receive Date: 20240806
  Receipt Date: 20240806
  Transmission Date: 20241017
  Serious: Yes (Other)
  Sender: AUROBINDO
  Company Number: GB-MHRA-WEBRADR-202407251811134290-GRMHS

PATIENT
  Age: 61 Year
  Sex: Female
  Weight: 97 kg

DRUGS (1)
  1. DULOXETINE [Suspect]
     Active Substance: DULOXETINE
     Indication: Trigeminal neuralgia
     Dosage: 60 MILLIGRAM
     Route: 048
     Dates: start: 20240718, end: 20240718

REACTIONS (3)
  - Muscle spasms [Recovering/Resolving]
  - Nausea [Recovering/Resolving]
  - Vomiting [Recovered/Resolved]

NARRATIVE: CASE EVENT DATE: 20240718
